FAERS Safety Report 9818257 (Version 1)
Quarter: 2014Q1

REPORT INFORMATION
  Report Type: Spontaneous
  Country: US (occurrence: US)
  Receive Date: 20140115
  Receipt Date: 20140115
  Transmission Date: 20141002
  Serious: No
  Sender: FDA-Public Use
  Company Number: US-BAYER-2014-006759

PATIENT
  Sex: Male

DRUGS (1)
  1. ALEVE TABLET [Suspect]

REACTIONS (4)
  - Pruritus [Recovered/Resolved]
  - Eye swelling [Recovered/Resolved]
  - Dizziness [Recovered/Resolved]
  - Sensation of heaviness [Recovered/Resolved]
